FAERS Safety Report 17202377 (Version 1)
Quarter: 2019Q4

REPORT INFORMATION
  Report Type: Spontaneous
  Country: AU (occurrence: AU)
  Receive Date: 20191226
  Receipt Date: 20191226
  Transmission Date: 20200122
  Serious: Yes (Other)
  Sender: FDA-Public Use
  Company Number: AU-SA-2019SA354115

PATIENT
  Sex: Male

DRUGS (1)
  1. DAONIL [Suspect]
     Active Substance: GLYBURIDE
     Dosage: UNK
     Dates: start: 201908

REACTIONS (2)
  - Chromaturia [Unknown]
  - Urinary tract infection [Unknown]

NARRATIVE: CASE EVENT DATE: 2019
